FAERS Safety Report 5633227-1 (Version None)
Quarter: 2008Q1

REPORT INFORMATION
  Report Type: 
  Country: None (occurrence: None)
  Receive Date: 20080215
  Receipt Date: 20080205
  Transmission Date: 20080703
  Serious: No
  Sender: FDA-Public Use
  Company Number: THQ2008A00155

PATIENT
  Age: 56 Year
  Sex: Female

DRUGS (1)
  1. LANSOPRAZOLE [Suspect]
     Dosage: 30 MG (1 D)
     Dates: start: 20051224, end: 20060807

REACTIONS (6)
  - EYE PAIN [None]
  - GINGIVAL PAIN [None]
  - ORAL DISCOMFORT [None]
  - PHARYNGOLARYNGEAL PAIN [None]
  - PHOTOPHOBIA [None]
  - TOOTHACHE [None]
